FAERS Safety Report 20159483 (Version 2)
Quarter: 2021Q4

REPORT INFORMATION
  Report Type: Spontaneous
  Country: US (occurrence: US)
  Receive Date: 20211208
  Receipt Date: 20211229
  Transmission Date: 20220303
  Serious: No
  Sender: FDA-Public Use
  Company Number: US-SA-SAC20211202001020

PATIENT
  Age: 13 Year
  Sex: Male

DRUGS (16)
  1. FABRAZYME [Suspect]
     Active Substance: AGALSIDASE BETA
     Indication: Fabry^s disease
     Dosage: 75 MG, QOW
     Route: 042
     Dates: start: 20150423
  2. FABRAZYME [Suspect]
     Active Substance: AGALSIDASE BETA
     Indication: Lipidosis
  3. AMOXICILLIN/CLAVULANIC ACID [AMOXICILLIN SODIUM;CLAVULANATE POTASSIUM] [Concomitant]
  4. CHILDREN^S CHEWABLE ACETAMINOPHEN [Concomitant]
  5. CORTISPORIN-TC [Concomitant]
     Active Substance: COLISTIN SULFATE\HYDROCORTISONE ACETATE\NEOMYCIN SULFATE\THONZONIUM BROMIDE
  6. ACETAMINOPHEN [Concomitant]
     Active Substance: ACETAMINOPHEN
  7. DIPHENHYDRAMINE [Concomitant]
     Active Substance: DIPHENHYDRAMINE
  8. SODIUM CHLORIDE [Concomitant]
     Active Substance: SODIUM CHLORIDE
  9. STERILE WATER [Concomitant]
     Active Substance: WATER
  10. EPINEPHRINE [Concomitant]
     Active Substance: EPINEPHRINE
  11. SOLU-MEDROL [Concomitant]
     Active Substance: METHYLPREDNISOLONE SODIUM SUCCINATE
  12. IBUPROFEN [Concomitant]
     Active Substance: IBUPROFEN
  13. VITAMIN D3 [Concomitant]
     Active Substance: CHOLECALCIFEROL
  14. CLARITIN [Concomitant]
     Active Substance: LORATADINE
  15. VITAMINS [Concomitant]
     Active Substance: VITAMINS
  16. MEDROL [METHYLPREDNISOLONE SODIUM PHOSPHATE] [Concomitant]

REACTIONS (5)
  - COVID-19 [Recovering/Resolving]
  - Exposure to SARS-CoV-2 [Unknown]
  - Cough [Unknown]
  - Headache [Unknown]
  - Product use in unapproved indication [Unknown]

NARRATIVE: CASE EVENT DATE: 20211101
